FAERS Safety Report 9198728 (Version 1)
Quarter: 2013Q1

REPORT INFORMATION
  Report Type: Spontaneous
  Country: US (occurrence: None)
  Receive Date: 20120709
  Receipt Date: 20120709
  Transmission Date: 20140127
  Serious: Yes (Other)
  Sender: FDA-Public Use
  Company Number: PHEH2012US006330

PATIENT
  Sex: Male

DRUGS (2)
  1. GLEEVEC (IMATINIB) UNKNOWN [Suspect]
     Indication: CHRONIC MYELOID LEUKAEMIA
     Route: 048
  2. SERTRALINE (SERTRALINE) (SERTRALINE) [Concomitant]

REACTIONS (3)
  - Pulmonary hypertension [None]
  - Cardiac failure [None]
  - Dyspnoea [None]
